FAERS Safety Report 9507621 (Version 1)
Quarter: 2013Q3

REPORT INFORMATION
  Report Type: Spontaneous
  Country: US (occurrence: None)
  Receive Date: 20130906
  Receipt Date: 20130906
  Transmission Date: 20140515
  Serious: Yes (Disabling)
  Sender: FDA-Public Use
  Company Number: None

PATIENT
  Age: 43 Year
  Sex: Female
  Weight: 90.27 kg

DRUGS (1)
  1. CIPROFLOXACIN 500 MYLAN [Suspect]
     Indication: BLOOD URINE PRESENT
     Dosage: 1  TWICE DAILY  TAKEN BY MOUTH
     Route: 048
     Dates: start: 20130829, end: 20130905

REACTIONS (4)
  - Paraesthesia [None]
  - Paraesthesia [None]
  - Burning sensation [None]
  - Pruritus [None]
